FAERS Safety Report 22023473 (Version 1)
Quarter: 2023Q1

REPORT INFORMATION
  Report Type: Spontaneous
  Country: PL (occurrence: PL)
  Receive Date: 20230223
  Receipt Date: 20230223
  Transmission Date: 20230418
  Serious: Yes (Other)
  Sender: FDA-Public Use
  Company Number: PL-CELLTRION INC.-2023PL003093

PATIENT

DRUGS (8)
  1. INFLIXIMAB [Suspect]
     Active Substance: INFLIXIMAB
     Indication: Colitis ulcerative
     Dosage: PREVIOUS THERAPY
  2. ADALIMUMAB [Suspect]
     Active Substance: ADALIMUMAB
     Indication: Colitis ulcerative
     Dosage: 80 MG/160 MILLIGRAM GREATER THAN OR EQUAL TO 40 KG WEIGHT  ON DAY 1
     Route: 058
  3. ADALIMUMAB [Suspect]
     Active Substance: ADALIMUMAB
     Dosage: 40 MG/80 MG ON WEEK 2
     Route: 058
  4. ADALIMUMAB [Suspect]
     Active Substance: ADALIMUMAB
     Dosage: MAINTENANCE DOSE: 40 MG, Q2WEEKS
     Route: 058
  5. VEDOLIZUMAB [Suspect]
     Active Substance: VEDOLIZUMAB
     Indication: Colitis ulcerative
     Dosage: FOR PATIENT LESS THAN OR EQUAL TO 30KG-150MG IV; GREATER THAN OR EQUAL TO 30KG WEIGHT - 300MG IV; 15
     Route: 042
  6. VEDOLIZUMAB [Suspect]
     Active Substance: VEDOLIZUMAB
     Dosage: MAINTENANCE DOSE EITHER 150 MG OR 300 MG EVERY 8 WEEKS
     Route: 042
  7. USTEKINUMAB [Concomitant]
     Active Substance: USTEKINUMAB
     Indication: Colitis ulcerative
     Dosage: INDUCTION DOSE: EQUAL OR LESS THAN 55KG - 260MG; 55-85 KG - 390MG AT DAY 1
     Route: 042
  8. USTEKINUMAB [Concomitant]
     Active Substance: USTEKINUMAB
     Dosage: 45 MG/90 MG (EQUAL OR GREATER THAN 40 KG BODY WEIGHT) INJECTION EVERY 8 WEEKS
     Route: 058

REACTIONS (2)
  - Anal abscess [Unknown]
  - Treatment failure [Unknown]
